FAERS Safety Report 4845296-7 (Version None)
Quarter: 2005Q4

REPORT INFORMATION
  Report Type: 
  Country: None (occurrence: None)
  Receive Date: 20051205
  Receipt Date: 20051115
  Transmission Date: 20060501
  Serious: Yes (Hospitalization)
  Sender: FDA-Public Use
  Company Number: 2005MP000305

PATIENT
  Age: 78 Year
  Sex: Female

DRUGS (16)
  1. ZANTAC [Suspect]
     Route: 042
     Dates: start: 20051020
  2. ALOXI [Suspect]
     Indication: BREAST CANCER
     Route: 042
     Dates: start: 20051020
  3. DEXAMETHASONE [Suspect]
     Route: 042
     Dates: start: 20051020
  4. TAXOL [Suspect]
  5. ARANESP [Suspect]
     Dates: start: 20051020
  6. HERCEPTIN [Suspect]
     Dates: start: 20051031
  7. HEPARIN LOCK-FLUSH [Suspect]
     Route: 042
     Dates: start: 20051031
  8. ZOMETA [Concomitant]
  9. MULTI-VITAMINS [Concomitant]
  10. SENNA [Concomitant]
  11. PROTONIX [Concomitant]
  12. FOLIC ACID [Concomitant]
  13. COUMADIN [Concomitant]
  14. PREDNISONE [Concomitant]
  15. TYLENOL [Concomitant]
  16. CARBOPLATIN [Concomitant]

REACTIONS (17)
  - ABASIA [None]
  - ARTHRALGIA [None]
  - BACK PAIN [None]
  - BLOOD PRESSURE INCREASED [None]
  - BUTTOCK PAIN [None]
  - CHEST DISCOMFORT [None]
  - CHILLS [None]
  - COOMBS TEST POSITIVE [None]
  - DYSPNOEA [None]
  - GROIN PAIN [None]
  - HAEMOLYSIS [None]
  - HEART RATE INCREASED [None]
  - OXYGEN SATURATION DECREASED [None]
  - PAIN IN EXTREMITY [None]
  - PARALYSIS [None]
  - PROTHROMBIN TIME PROLONGED [None]
  - PULMONARY EMBOLISM [None]
